FAERS Safety Report 21185596 (Version 3)
Quarter: 2022Q3

REPORT INFORMATION
  Report Type: Report from Study
  Country: JP (occurrence: JP)
  Receive Date: 20220808
  Receipt Date: 20220919
  Transmission Date: 20221026
  Serious: Yes (Hospitalization)
  Sender: FDA-Public Use
  Company Number: JP-PFIZER INC-PV202200036124

PATIENT
  Age: 53 Year
  Sex: Male
  Weight: 78 kg

DRUGS (20)
  1. NIRMATRELVIR\RITONAVIR [Suspect]
     Active Substance: NIRMATRELVIR\RITONAVIR
     Indication: COVID-19
     Dosage: [PF-07321332 300 MG]/[RITONAVIR 100 MG], 2X/DAY
     Dates: start: 20220226, end: 20220302
  2. TRANEXAMIC ACID [Concomitant]
     Active Substance: TRANEXAMIC ACID
     Indication: COVID-19
     Dosage: UNK
     Route: 048
     Dates: start: 20220225, end: 20220226
  3. CARBOCYSTEINE [Concomitant]
     Active Substance: CARBOCYSTEINE
     Indication: COVID-19
     Dosage: UNK
     Route: 048
     Dates: start: 20220225, end: 20220324
  4. BENPROPERINE PHOSPHATE [Concomitant]
     Active Substance: BENPROPERINE PHOSPHATE
     Indication: COVID-19
     Dosage: UNK
     Route: 048
     Dates: start: 20220225, end: 20220226
  5. HERBALS [Concomitant]
     Active Substance: HERBALS
     Indication: COVID-19
     Dosage: UNK
     Route: 048
     Dates: start: 20220225, end: 20220226
  6. BEPOTASTINE BESYLATE [Concomitant]
     Active Substance: BEPOTASTINE BESYLATE
     Indication: COVID-19
     Dosage: UNK
     Route: 048
     Dates: start: 20220225, end: 20220226
  7. METOCLOPRAMIDE [Concomitant]
     Active Substance: METOCLOPRAMIDE
     Indication: COVID-19
     Dosage: UNK
     Route: 048
     Dates: start: 20220225, end: 20220226
  8. CALONAL [Concomitant]
     Active Substance: ACETAMINOPHEN
     Indication: COVID-19
     Dosage: UNK
     Route: 048
     Dates: start: 20220225, end: 20220226
  9. CETYLPYRIDINIUM CHLORIDE [Concomitant]
     Active Substance: CETYLPYRIDINIUM CHLORIDE
     Indication: COVID-19
     Dosage: UNK
  10. SODIUM GUALENATE MONOHYDRATE [Concomitant]
     Active Substance: SODIUM GUALENATE MONOHYDRATE
     Indication: COVID-19
     Dosage: UNK
     Route: 048
     Dates: start: 20220225, end: 20220226
  11. DIMEMORFAN PHOSPHATE [Concomitant]
     Active Substance: DIMEMORFAN PHOSPHATE
     Indication: COVID-19
     Dosage: UNK
     Route: 048
     Dates: start: 20220226, end: 20220306
  12. MIYA-BM [Concomitant]
     Active Substance: CLOSTRIDIUM BUTYRICUM SPORES STRAIN M-55
     Indication: COVID-19
     Dosage: UNK
     Route: 048
     Dates: start: 20220226, end: 20220306
  13. REBAMIPIDE [Concomitant]
     Active Substance: REBAMIPIDE
     Indication: Gastritis prophylaxis
     Dosage: UNK
     Route: 048
     Dates: start: 20220226, end: 20220324
  14. DEQUALINIUM CHLORIDE [Concomitant]
     Active Substance: DEQUALINIUM CHLORIDE
     Indication: COVID-19
     Dosage: UNK
     Dates: start: 20220226, end: 20220324
  15. ALVESCO [Concomitant]
     Active Substance: CICLESONIDE
     Indication: COVID-19
     Dosage: UNK
     Dates: start: 20220226, end: 20220324
  16. AMLODIPINE [Concomitant]
     Active Substance: AMLODIPINE BESYLATE
     Dosage: UNK
     Route: 048
     Dates: start: 20220227
  17. CODEINE PHOSPHATE [Concomitant]
     Active Substance: CODEINE PHOSPHATE
     Indication: COVID-19
     Dosage: UNK
     Route: 048
     Dates: start: 20220308, end: 20220324
  18. LANSOPRAZOLE [Concomitant]
     Active Substance: LANSOPRAZOLE
     Dosage: UNK
     Route: 048
     Dates: start: 20220307, end: 20220324
  19. DEXTROMETHORPHAN HYDROBROMIDE [Concomitant]
     Active Substance: DEXTROMETHORPHAN HYDROBROMIDE
     Indication: COVID-19
     Dosage: UNK
     Route: 048
     Dates: start: 20220307, end: 20220308
  20. MONTELUKAST [Concomitant]
     Active Substance: MONTELUKAST SODIUM
     Indication: COVID-19
     Dosage: UNK
     Route: 048
     Dates: start: 20220307, end: 20220324

REACTIONS (3)
  - Back pain [Recovering/Resolving]
  - Condition aggravated [Recovering/Resolving]
  - Product prescribing error [Unknown]

NARRATIVE: CASE EVENT DATE: 20220226
